FAERS Safety Report 7372761-3 (Version None)
Quarter: 2011Q1

REPORT INFORMATION
  Report Type: 
  Country: None (occurrence: None)
  Receive Date: 20110324
  Receipt Date: 20110314
  Transmission Date: 20110831
  Serious: Yes (Other)
  Sender: FDA-Public Use
  Company Number: CA-JNJFOC-20110301471

PATIENT
  Age: 29 Year
  Sex: Male
  Weight: 106.6 kg

DRUGS (2)
  1. NICODERM STEP 2 CLEAR [Suspect]
     Indication: SMOKING CESSATION THERAPY
     Route: 062
  2. CONCERTA [Interacting]
     Indication: ATTENTION DEFICIT/HYPERACTIVITY DISORDER
     Route: 065

REACTIONS (6)
  - SPEECH DISORDER [None]
  - PAIN IN EXTREMITY [None]
  - MYDRIASIS [None]
  - EYE DISORDER [None]
  - ANXIETY [None]
  - DRUG INTERACTION [None]
